FAERS Safety Report 10945804 (Version 4)
Quarter: 2019Q2

REPORT INFORMATION
  Report Type: Spontaneous
  Country: CA (occurrence: CA)
  Receive Date: 20150323
  Receipt Date: 20190528
  Transmission Date: 20190711
  Serious: Yes (Congenital Anomaly, Other)
  Sender: FDA-Public Use
  Company Number: CA-PFIZER INC-2015095429

PATIENT
  Sex: Female

DRUGS (15)
  1. ISONIAZID. [Suspect]
     Active Substance: ISONIAZID
     Dosage: 300 MG, UNK
     Route: 064
  2. FLUCONAZOLE. [Suspect]
     Active Substance: FLUCONAZOLE
     Dosage: 150 MG, 1X/WEEK
     Route: 064
  3. RANITIDINE. [Suspect]
     Active Substance: RANITIDINE
     Dosage: 300 MG, 1X/DAY
     Route: 064
  4. FLUCONAZOLE. [Suspect]
     Active Substance: FLUCONAZOLE
     Dosage: UNK
     Route: 064
  5. RANITIDINE. [Suspect]
     Active Substance: RANITIDINE
     Dosage: 300 MG, UNK
     Route: 064
  6. RANITIDINE. [Suspect]
     Active Substance: RANITIDINE
     Dosage: UNK
     Route: 064
  7. VIOXX [Suspect]
     Active Substance: ROFECOXIB
     Dosage: 25 MG, 1X/DAY
     Route: 064
  8. ISONIAZID. [Suspect]
     Active Substance: ISONIAZID
     Dosage: UNK
     Route: 064
  9. MEPREDNISONE [Suspect]
     Active Substance: MEPREDNISONE
     Dosage: 8 MG, 1X/DAY
     Route: 064
  10. MEPREDNISONE [Suspect]
     Active Substance: MEPREDNISONE
     Dosage: UNK
     Route: 064
  11. FLUCONAZOLE. [Suspect]
     Active Substance: FLUCONAZOLE
     Dosage: 150 MG, UNK
     Route: 064
  12. METHOTREXATE SODIUM. [Suspect]
     Active Substance: METHOTREXATE SODIUM
     Dosage: 7.5 MG, 1X/WEEK
     Route: 064
  13. METHOTREXATE SODIUM. [Suspect]
     Active Substance: METHOTREXATE SODIUM
     Dosage: 7.5 MG, 1X/DAY
     Route: 064
  14. METHOTREXATE SODIUM. [Suspect]
     Active Substance: METHOTREXATE SODIUM
     Dosage: UNK, WEEKLY
     Route: 064
  15. VIOXX [Suspect]
     Active Substance: ROFECOXIB
     Dosage: UNK
     Route: 064

REACTIONS (9)
  - Low birth weight baby [Not Recovered/Not Resolved]
  - Apgar score abnormal [Not Recovered/Not Resolved]
  - Cerebral ventricle dilatation [Not Recovered/Not Resolved]
  - Premature baby [Not Recovered/Not Resolved]
  - Congenital skin dimples [Not Recovered/Not Resolved]
  - Foetal exposure during pregnancy [Not Recovered/Not Resolved]
  - Foetal growth restriction [Not Recovered/Not Resolved]
  - Finger deformity [Not Recovered/Not Resolved]
  - Talipes [Not Recovered/Not Resolved]
